FAERS Safety Report 9384913 (Version 2)
Quarter: 2013Q3

REPORT INFORMATION
  Report Type: Spontaneous
  Country: US (occurrence: US)
  Receive Date: 20130705
  Receipt Date: 20130830
  Transmission Date: 20140515
  Serious: Yes (Death, Hospitalization)
  Sender: FDA-Public Use
  Company Number: US-AMGEN-USASP2013046783

PATIENT
  Age: 87 Year
  Sex: Male

DRUGS (6)
  1. PROLIA [Suspect]
     Indication: OSTEOPOROSIS
     Dosage: 60 MG, Q6MO
     Route: 058
     Dates: start: 20110520, end: 20120618
  2. MILK OF MAGNESIA [Concomitant]
     Dosage: 30 ML, AS NECESSARY
     Route: 048
  3. GLUCAGON EMERGENCY KIT [Concomitant]
     Dosage: 1 MG, AS NECESSARY
  4. VALPROIC ACID [Concomitant]
     Dosage: 250 MG, BID
     Route: 048
  5. CATAPRES                           /00171101/ [Concomitant]
     Dosage: 0.1 MG/24HR, QWK
     Route: 062
  6. BISACODYL [Concomitant]
     Dosage: 5 MG, QD
     Route: 048

REACTIONS (6)
  - Renal failure [Fatal]
  - Hyponatraemia [Fatal]
  - Hypoxia [Fatal]
  - Pneumonia aspiration [Fatal]
  - Incontinence [Unknown]
  - Arthralgia [Unknown]
